FAERS Safety Report 17569916 (Version 1)
Quarter: 2020Q1

REPORT INFORMATION
  Report Type: Spontaneous
  Country: CZ (occurrence: CZ)
  Receive Date: 20200323
  Receipt Date: 20200323
  Transmission Date: 20200409
  Serious: Yes (Hospitalization, Other)
  Sender: FDA-Public Use
  Company Number: CZ-US-PROVELL PHARMACEUTICALS LLC-9152395

PATIENT
  Sex: Male

DRUGS (1)
  1. EUTHYROX [Suspect]
     Active Substance: LEVOTHYROXINE SODIUM
     Indication: PRODUCT USED FOR UNKNOWN INDICATION

REACTIONS (7)
  - Weight decreased [Recovering/Resolving]
  - Dyspepsia [Unknown]
  - Pneumonia [Unknown]
  - Aspiration [Unknown]
  - Surgery [Unknown]
  - Tissue injury [Unknown]
  - Dry mouth [Unknown]

NARRATIVE: CASE EVENT DATE: 2013
